FAERS Safety Report 23643204 (Version 1)
Quarter: 2024Q1

REPORT INFORMATION
  Report Type: Spontaneous
  Country: CN (occurrence: CN)
  Receive Date: 20240318
  Receipt Date: 20240318
  Transmission Date: 20240410
  Serious: Yes (Hospitalization, Other)
  Sender: FDA-Public Use
  Company Number: CN-PFIZER INC-PV202400034987

PATIENT
  Age: 11 Year
  Sex: Male
  Weight: 62 kg

DRUGS (1)
  1. METHOTREXATE SODIUM [Suspect]
     Active Substance: METHOTREXATE SODIUM
     Indication: Acute lymphocytic leukaemia
     Dosage: 7 G, 1X/DAY
     Dates: start: 20240216, end: 20240217

REACTIONS (2)
  - Blood creatinine increased [Recovering/Resolving]
  - Drug level above therapeutic [Unknown]

NARRATIVE: CASE EVENT DATE: 20240201
